FAERS Safety Report 13903810 (Version 1)
Quarter: 2017Q3

REPORT INFORMATION
  Report Type: Spontaneous
  Country: FR (occurrence: FR)
  Receive Date: 20170824
  Receipt Date: 20170824
  Transmission Date: 20171127
  Serious: Yes (Life-Threatening, Hospitalization, Other)
  Sender: FDA-Public Use
  Company Number: FR-BRISTOL-MYERS SQUIBB COMPANY-BMS-2007-000057

PATIENT
  Age: 55 Year
  Sex: Male

DRUGS (1)
  1. OPDIVO [Suspect]
     Active Substance: NIVOLUMAB
     Indication: METASTATIC BRONCHIAL CARCINOMA
     Dosage: 210 MG, QCYCLE
     Route: 042
     Dates: start: 20160721, end: 20170619

REACTIONS (2)
  - Adrenal insufficiency [Recovering/Resolving]
  - Rheumatic disorder [Recovering/Resolving]

NARRATIVE: CASE EVENT DATE: 201706
